FAERS Safety Report 22174774 (Version 1)
Quarter: 2023Q2

REPORT INFORMATION
  Report Type: Spontaneous
  Country: US (occurrence: US)
  Receive Date: 20230405
  Receipt Date: 20230405
  Transmission Date: 20230722
  Serious: Yes (Other)
  Sender: FDA-Public Use
  Company Number: US-AUROBINDO-AUR-APL-2023-010883

PATIENT
  Age: 35 Year
  Sex: Female

DRUGS (2)
  1. METHOTREXATE [Suspect]
     Active Substance: METHOTREXATE
     Indication: Crohn^s disease
     Dosage: 25 MG WEEKLY
     Route: 065
  2. USTEKINUMAB [Suspect]
     Active Substance: USTEKINUMAB
     Indication: Crohn^s disease
     Dosage: EVERY 4 WEEKS
     Route: 065

REACTIONS (3)
  - Apoptotic colonopathy [Recovered/Resolved]
  - Abdominal pain [Recovering/Resolving]
  - Diarrhoea [Recovered/Resolved]
